FAERS Safety Report 6030934-6 (Version None)
Quarter: 2009Q1

REPORT INFORMATION
  Report Type: 
  Country: None (occurrence: None)
  Receive Date: 20090106
  Receipt Date: 20081226
  Transmission Date: 20090719
  Serious: Yes (Other)
  Sender: FDA-Public Use
  Company Number: DSU-2008-02278

PATIENT
  Sex: Female

DRUGS (2)
  1. BENICAR [Suspect]
     Indication: HYPERTENSION
     Dosage: 20 MG (20 MG, QD), PER ORAL
     Route: 048
     Dates: start: 20080101
  2. COUMADIN [Suspect]
     Indication: ANTICOAGULANT THERAPY
     Dosage: PER ORAL
     Route: 048
     Dates: start: 20081217

REACTIONS (4)
  - ABDOMINAL DISCOMFORT [None]
  - ATRIAL FIBRILLATION [None]
  - FATIGUE [None]
  - MYALGIA [None]
